FAERS Safety Report 5059897-7 (Version None)
Quarter: 2006Q3

REPORT INFORMATION
  Report Type: 
  Country: None (occurrence: None)
  Receive Date: 20060718
  Receipt Date: 20060627
  Transmission Date: 20061208
  Serious: Yes (Other)
  Sender: FDA-Public Use
  Company Number: CA200606005702

PATIENT
  Age: 5 Year
  Sex: Male
  Weight: 22.7 kg

DRUGS (3)
  1. STRATTERA [Suspect]
     Indication: ATTENTION DEFICIT/HYPERACTIVITY DISORDER
     Dosage: 10 MG
     Dates: end: 20060612
  2. RISPERDAL [Concomitant]
  3. GABAPENTIN [Concomitant]

REACTIONS (9)
  - AGGRESSION [None]
  - CONVULSION [None]
  - CRYING [None]
  - DARK CIRCLES UNDER EYES [None]
  - DIARRHOEA [None]
  - FATIGUE [None]
  - FLATULENCE [None]
  - IRRITABILITY [None]
  - SOMNOLENCE [None]
